FAERS Safety Report 5708479-X (Version None)
Quarter: 2008Q2

REPORT INFORMATION
  Report Type: 
  Country: None (occurrence: None)
  Receive Date: 20080417
  Receipt Date: 20080407
  Transmission Date: 20081010
  Serious: Yes (Other)
  Sender: FDA-Public Use
  Company Number: US-PFIZER INC-2008030319

PATIENT
  Sex: Female
  Weight: 52.272 kg

DRUGS (3)
  1. LIPITOR [Suspect]
     Indication: BLOOD CHOLESTEROL INCREASED
     Dates: start: 20030101, end: 20070101
  2. BENTYL [Concomitant]
  3. ANTIHISTAMINES [Concomitant]

REACTIONS (3)
  - BLOOD CHOLESTEROL INCREASED [None]
  - GASTROINTESTINAL DISORDER [None]
  - WEIGHT DECREASED [None]
